FAERS Safety Report 6827646-5 (Version None)
Quarter: 2010Q3

REPORT INFORMATION
  Report Type: 
  Country: None (occurrence: None)
  Receive Date: 20100709
  Receipt Date: 20070123
  Transmission Date: 20110219
  Serious: No
  Sender: FDA-Public Use
  Company Number: US-PFIZER INC-2007006348

PATIENT
  Sex: Female
  Weight: 78.02 kg

DRUGS (6)
  1. CHANTIX [Suspect]
     Indication: SMOKING CESSATION THERAPY
     Dates: start: 20060501
  2. DILTIAZEM [Concomitant]
  3. PROTONIX [Concomitant]
  4. GABAPENTIN [Concomitant]
  5. ACETYLSALICYLIC ACID [Concomitant]
  6. MORPHINE [Concomitant]

REACTIONS (1)
  - GASTRIC ULCER [None]
